FAERS Safety Report 14734360 (Version 1)
Quarter: 2018Q2

REPORT INFORMATION
  Report Type: Spontaneous
  Country: US (occurrence: US)
  Receive Date: 20180409
  Receipt Date: 20180409
  Transmission Date: 20180711
  Serious: Yes (Other)
  Sender: FDA-Public Use
  Company Number: US-LEXICON PHARMACEUTICALS, INC-18-1606-00353

PATIENT
  Sex: Male

DRUGS (10)
  1. SANDOSTATIN LAR DEPOT [Concomitant]
     Active Substance: OCTREOTIDE ACETATE
  2. SYNTHROID [Concomitant]
     Active Substance: LEVOTHYROXINE SODIUM
  3. XIFAXAN [Concomitant]
     Active Substance: RIFAXIMIN
  4. TELOTRISTAT ETHYL [Suspect]
     Active Substance: TELOTRISTAT ETHYL
     Indication: CARCINOID SYNDROME
     Route: 048
     Dates: start: 20170322
  5. LIDODERM [Concomitant]
     Active Substance: LIDOCAINE
  6. PREDNISONE. [Concomitant]
     Active Substance: PREDNISONE
  7. WELLBUTRIN SR [Concomitant]
     Active Substance: BUPROPION HYDROCHLORIDE
  8. MEDI-PATCH RX [Concomitant]
  9. OXYCONTIN [Concomitant]
     Active Substance: OXYCODONE HYDROCHLORIDE
  10. LACTULOSE. [Concomitant]
     Active Substance: LACTULOSE

REACTIONS (3)
  - Portal hypertension [Not Recovered/Not Resolved]
  - Ascites [Not Recovered/Not Resolved]
  - Varices oesophageal [Not Recovered/Not Resolved]
